FAERS Safety Report 5322512-9 (Version None)
Quarter: 2007Q1

REPORT INFORMATION
  Report Type: 
  Country: None (occurrence: None)
  Receive Date: 20070220
  Receipt Date: 20070115
  Transmission Date: 20070707
  Serious: No
  Sender: FDA-Public Use
  Company Number: TPA2007A00117

PATIENT
  Sex: Male

DRUGS (2)
  1. ROZEREM [Suspect]
     Indication: SLEEP DISORDER
     Dosage: PER ORAL
     Route: 048
  2. ROZEREM [Suspect]
     Indication: STRESS
     Dosage: PER ORAL
     Route: 048

REACTIONS (1)
  - DRUG INEFFECTIVE [None]
